FAERS Safety Report 7401675-5 (Version None)
Quarter: 2011Q2

REPORT INFORMATION
  Report Type: 
  Country: None (occurrence: None)
  Receive Date: 20110408
  Receipt Date: 20110330
  Transmission Date: 20111010
  Serious: No
  Sender: FDA-Public Use
  Company Number: US-BIOGENIDEC-2011BI012160

PATIENT
  Sex: Female

DRUGS (1)
  1. AVONEX [Suspect]
     Indication: MULTIPLE SCLEROSIS
     Route: 030
     Dates: start: 20110119

REACTIONS (6)
  - SPEECH DISORDER [None]
  - POOR QUALITY SLEEP [None]
  - PARAESTHESIA [None]
  - GAIT DISTURBANCE [None]
  - MOBILITY DECREASED [None]
  - FALL [None]
